FAERS Safety Report 9858875 (Version 1)
Quarter: 2014Q1

REPORT INFORMATION
  Report Type: Spontaneous
  Country: US (occurrence: US)
  Receive Date: 20140131
  Receipt Date: 20140131
  Transmission Date: 20141002
  Serious: No
  Sender: FDA-Public Use
  Company Number: US-BAXTER-2014BAX003566

PATIENT
  Age: 60 Year
  Sex: Female

DRUGS (4)
  1. DIANEAL PD2 [Suspect]
     Indication: RENAL FAILURE CHRONIC
     Route: 033
     Dates: start: 2012
  2. DIANEAL PD2 [Suspect]
     Route: 033
     Dates: start: 201401
  3. DIANEAL PD2 [Suspect]
     Indication: RENAL FAILURE CHRONIC
     Route: 033
     Dates: start: 2012
  4. DIANEAL PD2 [Suspect]
     Route: 033
     Dates: start: 201401

REACTIONS (1)
  - Swelling [Recovering/Resolving]
